FAERS Safety Report 5306143-2 (Version None)
Quarter: 2007Q2

REPORT INFORMATION
  Report Type: 
  Country: None (occurrence: None)
  Receive Date: 20070417
  Receipt Date: 20070402
  Transmission Date: 20071010
  Serious: Yes (Hospitalization, Other)
  Sender: FDA-Public Use
  Company Number: PAR_1483_2007

PATIENT
  Age: 57 Year
  Sex: Female

DRUGS (2)
  1. ALLOPURINOL [Suspect]
     Indication: CALCULUS URETERIC
     Dosage: DF
     Dates: start: 19980401, end: 19980601
  2. TIMEPIDIUM BROMIDE [Suspect]
     Indication: CALCULUS URETERIC
     Dosage: DF
     Dates: end: 19980601

REACTIONS (5)
  - ALANINE AMINOTRANSFERASE INCREASED [None]
  - ASPARTATE AMINOTRANSFERASE INCREASED [None]
  - BLOOD ALKALINE PHOSPHATASE INCREASED [None]
  - EOSINOPHILIC PUSTULAR FOLLICULITIS [None]
  - GAMMA-GLUTAMYLTRANSFERASE INCREASED [None]
